FAERS Safety Report 5798509-1 (Version None)
Quarter: 2008Q3

REPORT INFORMATION
  Report Type: 
  Country: None (occurrence: None)
  Receive Date: 20080702
  Receipt Date: 20080624
  Transmission Date: 20090109
  Serious: Yes (Death)
  Sender: FDA-Public Use
  Company Number: JP-MERCK-0806USA08669

PATIENT

DRUGS (3)
  1. PRIMAXIN [Suspect]
     Route: 042
  2. MINOMYCIN [Concomitant]
     Route: 065
  3. [THERAPY UNSPECIFIED] [Concomitant]
     Indication: ENDOTRACHEAL INTUBATION
     Route: 065

REACTIONS (1)
  - CHOLECYSTITIS INFECTIVE [None]
